FAERS Safety Report 9609720 (Version 1)
Quarter: 2013Q4

REPORT INFORMATION
  Report Type: Spontaneous
  Country: US (occurrence: None)
  Receive Date: 20131008
  Receipt Date: 20131008
  Transmission Date: 20140711
  Serious: Yes (Other)
  Sender: FDA-Public Use
  Company Number: None

PATIENT
  Age: 71 Year
  Sex: Male
  Weight: 70.31 kg

DRUGS (1)
  1. TRAMADOL [Suspect]
     Indication: PAIN
     Dates: start: 20131004, end: 20131006

REACTIONS (6)
  - Oedema peripheral [None]
  - Generalised erythema [None]
  - Pruritus generalised [None]
  - Oedema peripheral [None]
  - Erythema [None]
  - Pruritus generalised [None]
